FAERS Safety Report 4618526-4 (Version None)
Quarter: 2005Q2

REPORT INFORMATION
  Report Type: 
  Country: None (occurrence: None)
  Receive Date: 20050311
  Receipt Date: 20041109
  Transmission Date: 20051028
  Serious: No
  Sender: FDA-Public Use
  Company Number: 2004-BP-10841BP

PATIENT
  Age: 60 Year
  Sex: Male

DRUGS (5)
  1. SPIRIVA [Suspect]
     Indication: CHRONIC OBSTRUCTIVE PULMONARY DISEASE
     Dosage: 18 MCG (18 MCG, 1 IN 1 D), IH
     Route: 055
     Dates: start: 20041014, end: 20041016
  2. SPIRIVA [Suspect]
     Indication: EMPHYSEMA
     Dosage: 18 MCG (18 MCG, 1 IN 1 D), IH
     Route: 055
     Dates: start: 20041014, end: 20041016
  3. ASPIRIN [Suspect]
     Dates: start: 20041014, end: 20041016
  4. CAFFEINE (CAFFEINE) [Suspect]
  5. MULTIVITAMIN [Concomitant]

REACTIONS (1)
  - TINNITUS [None]
